FAERS Safety Report 23530843 (Version 5)
Quarter: 2024Q2

REPORT INFORMATION
  Report Type: Report from Study
  Country: US (occurrence: US)
  Receive Date: 20240216
  Receipt Date: 20240425
  Transmission Date: 20240716
  Serious: Yes (Other)
  Sender: FDA-Public Use
  Company Number: US-ABBVIE-5641334

PATIENT
  Age: 73 Year
  Sex: Male
  Weight: 99 kg

DRUGS (4)
  1. LINZESS [Suspect]
     Active Substance: LINACLOTIDE
     Indication: Irritable bowel syndrome
     Dosage: TIME INTERVAL: AS NECESSARY: FORM STRENGTH: 145 MICROGRAM, AS NEEDED; GENERALLY ONCE/TWICE A WEEK
     Route: 048
     Dates: start: 2022
  2. LINZESS [Suspect]
     Active Substance: LINACLOTIDE
     Indication: Irritable bowel syndrome
     Dosage: TIME INTERVAL: AS NECESSARY: FORM STRENGTH: 145 MICROGRAM, AS NEEDED; GENERALLY, ONCE/TWICE A WEE...
     Route: 048
     Dates: start: 20200101
  3. DORZOLAMIDE [Concomitant]
     Active Substance: DORZOLAMIDE
     Indication: Glaucoma
  4. ZINC [Concomitant]
     Active Substance: PYRITHIONE ZINC\ZINC\ZINC CHLORIDE
     Indication: Product used for unknown indication

REACTIONS (9)
  - Dry age-related macular degeneration [Not Recovered/Not Resolved]
  - Macular degeneration [Not Recovered/Not Resolved]
  - Dry eye [Not Recovered/Not Resolved]
  - Retinal vein occlusion [Unknown]
  - Neovascular age-related macular degeneration [Not Recovered/Not Resolved]
  - Retinal artery thrombosis [Unknown]
  - Visual impairment [Not Recovered/Not Resolved]
  - Therapeutic product effect decreased [Not Recovered/Not Resolved]
  - Product dispensing error [Unknown]

NARRATIVE: CASE EVENT DATE: 20200101
